FAERS Safety Report 5653793-X (Version None)
Quarter: 2008Q1

REPORT INFORMATION
  Report Type: 
  Country: None (occurrence: None)
  Receive Date: 20080206
  Receipt Date: 20070828
  Transmission Date: 20080703
  Serious: Yes (Hospitalization)
  Sender: FDA-Public Use
  Company Number: US200708006859

PATIENT
  Age: 56 Year
  Sex: Female

DRUGS (3)
  1. EVISTA [Suspect]
     Dosage: 60 MG, ORAL
     Route: 048
     Dates: start: 20030601, end: 20070820
  2. MULTIVITAMIN [Concomitant]
  3. COUMADIN [Concomitant]

REACTIONS (2)
  - DEEP VEIN THROMBOSIS [None]
  - PULMONARY EMBOLISM [None]
